FAERS Safety Report 4497020-8 (Version None)
Quarter: 2004Q3

REPORT INFORMATION
  Report Type: 
  Country: None (occurrence: None)
  Receive Date: 20040928
  Receipt Date: 20040726
  Transmission Date: 20050211
  Serious: No
  Sender: FDA-Public Use
  Company Number: 04P-163-0268227-00

PATIENT
  Age: 62 Year
  Sex: Female

DRUGS (1)
  1. HUMIRA [Suspect]
     Indication: RHEUMATOID ARTHRITIS
     Dosage: 40 MG, SUBCUTANEOUS
     Route: 058
     Dates: start: 20040101

REACTIONS (9)
  - EAR PRURITUS [None]
  - EYE IRRITATION [None]
  - FEELING COLD [None]
  - HYPERHIDROSIS [None]
  - LIP DISCOLOURATION [None]
  - NASAL CONGESTION [None]
  - ORAL DISCOMFORT [None]
  - SWELLING FACE [None]
  - THROAT IRRITATION [None]
